FAERS Safety Report 6865096-6 (Version None)
Quarter: 2010Q3

REPORT INFORMATION
  Report Type: 
  Country: None (occurrence: None)
  Receive Date: 20100721
  Receipt Date: 20080414
  Transmission Date: 20110219
  Serious: No
  Sender: FDA-Public Use
  Company Number: US-PFIZER INC-2008032639

PATIENT
  Sex: Female
  Weight: 58.2 kg

DRUGS (2)
  1. CHANTIX [Suspect]
     Indication: SMOKING CESSATION THERAPY
     Dates: start: 20080120, end: 20080413
  2. CONTRACEPTIVE, UNSPECIFIED [Concomitant]
     Indication: CONTRACEPTION

REACTIONS (2)
  - DIZZINESS [None]
  - NAUSEA [None]
